FAERS Safety Report 11706555 (Version 1)
Quarter: 2015Q4

REPORT INFORMATION
  Report Type: Spontaneous
  Country: CN (occurrence: CN)
  Receive Date: 20151106
  Receipt Date: 20151106
  Transmission Date: 20160304
  Serious: Yes (Other)
  Sender: FDA-Public Use
  Company Number: CN-JNJFOC-20151105425

PATIENT

DRUGS (2)
  1. INFLIXIMAB, RECOMBINANT [Suspect]
     Active Substance: INFLIXIMAB
     Indication: SPONDYLITIS
     Dosage: INFUSED AT WEEKS 0, 2, 6, AND 14 AND EVERY OTHER 8 WEEKS AS DIRECTED
     Route: 042
  2. INFLIXIMAB, RECOMBINANT [Suspect]
     Active Substance: INFLIXIMAB
     Indication: UVEITIS
     Dosage: INFUSED AT WEEKS 0, 2, 6, AND 14 AND EVERY OTHER 8 WEEKS AS DIRECTED
     Route: 042

REACTIONS (4)
  - Tuberculosis [Unknown]
  - Rash [Unknown]
  - Transaminases increased [Unknown]
  - Dizziness [Unknown]
